FAERS Safety Report 5306950-6 (Version None)
Quarter: 2007Q2

REPORT INFORMATION
  Report Type: 
  Country: None (occurrence: None)
  Receive Date: 20070425
  Receipt Date: 20070418
  Transmission Date: 20071010
  Serious: Yes (Hospitalization, Other)
  Sender: FDA-Public Use
  Company Number: JP-BAYER-200710294BYL

PATIENT
  Age: 74 Year
  Sex: Female
  Weight: 64 kg

DRUGS (26)
  1. BAY43-9006 [Suspect]
     Indication: HEPATIC NEOPLASM MALIGNANT
     Dosage: TOTAL DAILY DOSE: 800 MG  UNIT DOSE: 200 MG
     Route: 048
     Dates: start: 20070208, end: 20070218
  2. URSO [Concomitant]
     Indication: HEPATITIS C
     Dosage: TOTAL DAILY DOSE: 600 MG  UNIT DOSE: 200 MG
     Route: 048
  3. NATRIX [Concomitant]
     Indication: HYPERTENSION
     Dosage: TOTAL DAILY DOSE: 1 MG  UNIT DOSE: 1 MG
     Route: 048
  4. DIOVAN [Concomitant]
     Indication: HYPERTENSION
     Dosage: TOTAL DAILY DOSE: 40 MG
     Route: 048
  5. BUFFERIN [Concomitant]
     Indication: PROPHYLAXIS
     Dosage: TOTAL DAILY DOSE: 81 MG  UNIT DOSE: 81 MG
     Route: 048
  6. NITRODERM [Concomitant]
     Indication: PROPHYLAXIS
     Dosage: TOTAL DAILY DOSE: 25 MG  UNIT DOSE: 25 MG
     Route: 062
  7. KAMAG G [Concomitant]
     Indication: CONSTIPATION
     Dosage: TOTAL DAILY DOSE: 1.5 G  UNIT DOSE: 0.5 G
     Route: 048
  8. TELEMINSOFT [Concomitant]
     Indication: CONSTIPATION
     Dosage: TOTAL DAILY DOSE: 10 MG  UNIT DOSE: 10 MG
     Route: 054
     Dates: start: 20070220, end: 20070228
  9. PURSENNID [Concomitant]
     Indication: CONSTIPATION
     Dosage: TOTAL DAILY DOSE: 24 MG  UNIT DOSE: 12 MG
     Route: 048
     Dates: start: 20070221, end: 20070224
  10. LENDORMIN D [Concomitant]
     Indication: INSOMNIA
     Dosage: TOTAL DAILY DOSE: 0.25 MG  UNIT DOSE: 0.25 MG
     Route: 048
     Dates: start: 20070219, end: 20070219
  11. AMINOLEBAN [Concomitant]
     Indication: HEPATIC ENCEPHALOPATHY
     Dosage: UNIT DOSE: 500 ML
     Route: 042
     Dates: start: 20070219, end: 20070222
  12. NEO-MINOPHAGEN C [Concomitant]
     Indication: HEPATIC FUNCTION ABNORMAL
     Dosage: UNIT DOSE: 20 ML
     Route: 042
     Dates: start: 20070219, end: 20070222
  13. VEEN 3G [Concomitant]
     Indication: DEHYDRATION
     Dosage: UNIT DOSE: 500 ML
     Route: 042
     Dates: start: 20070219, end: 20070222
  14. PORTOLAC [Concomitant]
     Indication: HEPATIC ENCEPHALOPATHY
     Dosage: TOTAL DAILY DOSE: 18 G  UNIT DOSE: 6 G
     Route: 048
     Dates: start: 20070219, end: 20070222
  15. HACHIAZULE [Concomitant]
     Indication: STOMATITIS
     Route: 048
     Dates: start: 20070221, end: 20070305
  16. KENALOG [Concomitant]
     Indication: STOMATITIS
     Route: 061
     Dates: start: 20070222, end: 20070305
  17. ADOFEED [Concomitant]
     Indication: SKIN EXFOLIATION
     Route: 061
     Dates: start: 20070222, end: 20070222
  18. MONILAC [Concomitant]
     Indication: HEPATIC ENCEPHALOPATHY
     Dosage: UNIT DOSE: 6.5 MG
     Route: 062
     Dates: start: 20070222, end: 20070224
  19. MONILAC [Concomitant]
     Dosage: UNIT DOSE: 6.5 MG
     Route: 062
     Dates: start: 20070301
  20. KETOPROFEN [Concomitant]
     Indication: ARTHRALGIA
     Route: 061
     Dates: start: 20070222, end: 20070222
  21. RESTAMIN [Concomitant]
     Indication: SKIN EXFOLIATION
     Route: 061
     Dates: start: 20070223, end: 20070224
  22. PREDONINE [Concomitant]
     Indication: SKIN EXFOLIATION
     Dosage: TOTAL DAILY DOSE: 10 MG  UNIT DOSE: 5 MG
     Route: 048
     Dates: start: 20070225, end: 20070227
  23. VOALLA [Concomitant]
     Indication: SKIN EXFOLIATION
     Route: 061
     Dates: start: 20070224, end: 20070308
  24. VISDERM [Concomitant]
     Indication: RASH
     Route: 061
     Dates: start: 20070224, end: 20070308
  25. KERATINAMIN [Concomitant]
     Indication: RASH
     Route: 061
     Dates: start: 20070224, end: 20070308
  26. LOXONIN [Concomitant]
     Indication: PYREXIA
     Route: 048
     Dates: start: 20070301, end: 20070304

REACTIONS (3)
  - HEPATIC ENCEPHALOPATHY [None]
  - RASH [None]
  - SEPSIS [None]
